FAERS Safety Report 14610672 (Version 1)
Quarter: 2018Q1

REPORT INFORMATION
  Report Type: Report from Study
  Country: None (occurrence: ES)
  Receive Date: 20180307
  Receipt Date: 20180307
  Transmission Date: 20180509
  Serious: Yes (Hospitalization, Other)
  Sender: FDA-Public Use
  Company Number: ES-ABBVIE-17K-144-2093595-00

PATIENT
  Age: 75 Year
  Sex: Male
  Weight: 63 kg

DRUGS (2)
  1. DUODOPA [Suspect]
     Active Substance: CARBIDOPA\LEVODOPA
     Dosage: MD HAS BEEN INCREASED 0.4 ML AND THE ED HAS BEEN INCREASED 0.7 ML (UNKNOWN DOSES).
     Route: 050
     Dates: start: 2017
  2. DUODOPA [Suspect]
     Active Substance: CARBIDOPA\LEVODOPA
     Indication: PARKINSON^S DISEASE
     Route: 050
     Dates: start: 20170720, end: 2017

REACTIONS (12)
  - Disorientation [Unknown]
  - Mobility decreased [Not Recovered/Not Resolved]
  - Hypothermia [Unknown]
  - Blood creatine phosphokinase increased [Recovered/Resolved]
  - Drug ineffective [Not Recovered/Not Resolved]
  - Anxiety [Unknown]
  - Dehydration [Unknown]
  - Fall [Recovering/Resolving]
  - Anxiety [Not Recovered/Not Resolved]
  - Freezing phenomenon [Recovered/Resolved]
  - Pain in extremity [Not Recovered/Not Resolved]
  - On and off phenomenon [Recovering/Resolving]

NARRATIVE: CASE EVENT DATE: 201708
